FAERS Safety Report 10754102 (Version 1)
Quarter: 2015Q1

REPORT INFORMATION
  Report Type: Spontaneous
  Country: US (occurrence: US)
  Receive Date: 20150202
  Receipt Date: 20150202
  Transmission Date: 20150721
  Serious: No
  Sender: FDA-Public Use
  Company Number: US-LEO PHARMA-232083

PATIENT
  Sex: Female

DRUGS (1)
  1. PICATO [Suspect]
     Active Substance: INGENOL MEBUTATE
     Indication: ACTINIC KERATOSIS
     Route: 061
     Dates: start: 20150108, end: 20150108

REACTIONS (10)
  - Application site exfoliation [Not Recovered/Not Resolved]
  - Application site pruritus [Recovered/Resolved]
  - Oral discomfort [Recovered/Resolved]
  - Eye pruritus [Recovered/Resolved]
  - Erythema of eyelid [Recovered/Resolved]
  - Drug administration error [Unknown]
  - Oral pruritus [Recovered/Resolved]
  - Eye irritation [Recovered/Resolved]
  - Application site pain [Recovered/Resolved]
  - Incorrect drug administration duration [Unknown]

NARRATIVE: CASE EVENT DATE: 20150108
